FAERS Safety Report 11519909 (Version 1)
Quarter: 2015Q3

REPORT INFORMATION
  Report Type: Spontaneous
  Country: US (occurrence: None)
  Receive Date: 20150917
  Receipt Date: 20150917
  Transmission Date: 20151125
  Serious: Yes (Life-Threatening, Hospitalization, Disabling)
  Sender: FDA-Public Use
  Company Number: None

PATIENT
  Age: 63 Year
  Sex: Female
  Weight: 80.74 kg

DRUGS (7)
  1. OMEPRAZOLE. [Concomitant]
     Active Substance: OMEPRAZOLE
  2. VERAPAMIL [Concomitant]
     Active Substance: VERAPAMIL HYDROCHLORIDE
  3. LINACLOTIDE (LINZESS) [Concomitant]
  4. OXYCODONE [Concomitant]
     Active Substance: OXYCODONE
  5. WOMEN OVER 50 VITAMINS [Concomitant]
  6. RECLAST [Suspect]
     Active Substance: ZOLEDRONIC ACID
     Indication: OSTEOPOROSIS
     Dosage: 250 MG PER 500 ML?EVERY YEAR?INTRAVENOUS ?INFUISION
     Route: 042
     Dates: start: 20150816, end: 20150826
  7. TYLENOL PM [Concomitant]
     Active Substance: ACETAMINOPHEN\DIPHENHYDRAMINE

REACTIONS (20)
  - Thrombosis [None]
  - Confusional state [None]
  - Visual impairment [None]
  - Bone pain [None]
  - Injection site swelling [None]
  - Injection site erythema [None]
  - Renal failure [None]
  - Constipation [None]
  - Erythema [None]
  - Dizziness [None]
  - Myalgia [None]
  - Asthenia [None]
  - Cough [None]
  - Dyspnoea [None]
  - Malaise [None]
  - Headache [None]
  - Chills [None]
  - Arthralgia [None]
  - Nausea [None]
  - Decreased appetite [None]

NARRATIVE: CASE EVENT DATE: 20150809
